FAERS Safety Report 21008641 (Version 1)
Quarter: 2022Q2

REPORT INFORMATION
  Report Type: Other
  Country: None (occurrence: AU)
  Receive Date: 20220627
  Receipt Date: 20220627
  Transmission Date: 20220721
  Serious: Yes (Death, Other)
  Sender: FDA-Public Use
  Company Number: AU-Nuvo Pharmaceuticals Inc-2130301

PATIENT
  Age: 46 Year
  Sex: Male
  Weight: 88 kg

DRUGS (1)
  1. DIAZEPAM [Suspect]
     Active Substance: DIAZEPAM
     Indication: Product used for unknown indication
     Route: 065

REACTIONS (2)
  - Asphyxia [Fatal]
  - Sedation [Fatal]
